FAERS Safety Report 8413491-6 (Version None)
Quarter: 2012Q2

REPORT INFORMATION
  Report Type: 
  Country: None (occurrence: None)
  Receive Date: 20120605
  Receipt Date: 20120521
  Transmission Date: 20120825
  Serious: No
  Sender: FDA-Public Use
  Company Number: US-ASTRAZENECA-2011SE21545

PATIENT
  Age: 74 Year
  Sex: Female

DRUGS (1)
  1. NEXIUM [Suspect]
     Route: 048

REACTIONS (6)
  - DYSPNOEA [None]
  - OESOPHAGEAL PAIN [None]
  - HYPERVENTILATION [None]
  - MENTAL DISORDER [None]
  - INTENTIONAL DRUG MISUSE [None]
  - DYSPEPSIA [None]
